FAERS Safety Report 6347005-1 (Version None)
Quarter: 2009Q3

REPORT INFORMATION
  Report Type: 
  Country: None (occurrence: None)
  Receive Date: 20090909
  Receipt Date: 20090909
  Transmission Date: 20100115
  Serious: Yes (Hospitalization)
  Sender: FDA-Public Use
  Company Number: None

PATIENT
  Age: 56 Year
  Sex: Male
  Weight: 283 kg

DRUGS (2)
  1. ALLI [Suspect]
     Indication: WEIGHT DECREASED
     Dosage: 120 MG TID PO
     Route: 048
     Dates: start: 20090812, end: 20090902
  2. LISINOPRIL [Suspect]
     Indication: HYPERTENSION
     Dosage: 40 MG QD PO
     Route: 048

REACTIONS (14)
  - ABDOMINAL DISTENSION [None]
  - BLOOD POTASSIUM INCREASED [None]
  - BREATH ODOUR [None]
  - CONSTIPATION [None]
  - DIARRHOEA [None]
  - DYSURIA [None]
  - FATIGUE [None]
  - INCORRECT DOSE ADMINISTERED [None]
  - MALAISE [None]
  - PALPITATIONS [None]
  - POLLAKIURIA [None]
  - PRURITUS [None]
  - SPEECH DISORDER [None]
  - VISION BLURRED [None]
